FAERS Safety Report 13127553 (Version 1)
Quarter: 2017Q1

REPORT INFORMATION
  Report Type: Spontaneous
  Country: US (occurrence: US)
  Receive Date: 20170118
  Receipt Date: 20170118
  Transmission Date: 20170428
  Serious: No
  Sender: FDA-Public Use
  Company Number: US-NOVOPROD-519589

PATIENT
  Age: 58 Year
  Sex: Female

DRUGS (6)
  1. TRESIBA FLEXTOUCH U200 [Suspect]
     Active Substance: INSULIN DEGLUDEC
     Dosage: 18 U, SINGLE
     Dates: start: 201611
  2. TRESIBA FLEXTOUCH U200 [Suspect]
     Active Substance: INSULIN DEGLUDEC
     Indication: TYPE 1 DIABETES MELLITUS
     Dosage: 20 U, QD
     Route: 058
     Dates: start: 201607
  3. APIDRA [Suspect]
     Active Substance: INSULIN GLULISINE
     Dosage: 8 U, SINGLE
     Route: 058
     Dates: start: 20101109, end: 20161109
  4. APIDRA [Suspect]
     Active Substance: INSULIN GLULISINE
     Dosage: SLIDING SCALE
     Route: 058
     Dates: start: 20161110
  5. TRESIBA FLEXTOUCH U200 [Suspect]
     Active Substance: INSULIN DEGLUDEC
     Dosage: 20 U, QD
     Route: 058
     Dates: start: 201611
  6. APIDRA [Suspect]
     Active Substance: INSULIN GLULISINE
     Indication: TYPE 1 DIABETES MELLITUS
     Dosage: SLIDING SCALE
     Route: 058
     Dates: start: 2010, end: 201611

REACTIONS (4)
  - Blood glucose decreased [Recovered/Resolved]
  - Blood glucose fluctuation [Unknown]
  - Blood glucose increased [Recovered/Resolved]
  - Blood glucose decreased [Unknown]

NARRATIVE: CASE EVENT DATE: 20161109
